FAERS Safety Report 19785359 (Version 6)
Quarter: 2022Q2

REPORT INFORMATION
  Report Type: Spontaneous
  Country: US (occurrence: US)
  Receive Date: 20210903
  Receipt Date: 20220427
  Transmission Date: 20220721
  Serious: Yes (Other)
  Sender: FDA-Public Use
  Company Number: US-PFIZER INC-202101042097

PATIENT
  Age: 61 Year
  Sex: Female

DRUGS (21)
  1. XELJANZ XR [Suspect]
     Active Substance: TOFACITINIB CITRATE
     Indication: Rheumatoid arthritis
     Dosage: 11 MG, DAILY
     Route: 048
  2. XELJANZ XR [Suspect]
     Active Substance: TOFACITINIB CITRATE
     Dosage: 11 MG, 1X/DAY
     Route: 048
  3. BUSPIRONE HYDROCHLORIDE [Concomitant]
     Active Substance: BUSPIRONE HYDROCHLORIDE
     Dosage: UNK
  4. HYDROXYCHLOROQUINE SULFATE [Concomitant]
     Active Substance: HYDROXYCHLOROQUINE SULFATE
     Dosage: UNK
  5. CALCIUM GUMMY [Concomitant]
     Dosage: UNK
  6. MEDROL [Concomitant]
     Active Substance: METHYLPREDNISOLONE
     Dosage: UNK
  7. SUCRALFATE [Concomitant]
     Active Substance: SUCRALFATE
     Dosage: UNK
  8. QUETIAPINE FUMARATE [Concomitant]
     Active Substance: QUETIAPINE FUMARATE
     Dosage: UNK
  9. PANTOPRAZOLE SODIUM [Concomitant]
     Active Substance: PANTOPRAZOLE SODIUM
     Dosage: UNK
  10. METOPROLOL TARTRATE [Concomitant]
     Active Substance: METOPROLOL TARTRATE
     Dosage: UNK
  11. VITAMIN B12 [Concomitant]
     Active Substance: CYANOCOBALAMIN
     Dosage: UNK
  12. CEFDINIR [Concomitant]
     Active Substance: CEFDINIR
     Dosage: UNK
  13. PROMETHEGAN [Concomitant]
     Active Substance: PROMETHAZINE HYDROCHLORIDE
     Dosage: UNK
  14. VITAMIN D2 [Concomitant]
     Active Substance: ERGOCALCIFEROL
     Dosage: UNK
  15. IBUPROFEN [Concomitant]
     Active Substance: IBUPROFEN
     Dosage: UNK
  16. ATORVASTATIN CALCIUM [Concomitant]
     Active Substance: ATORVASTATIN CALCIUM
     Dosage: UNK
  17. MONTELUKAST SODIUM [Concomitant]
     Active Substance: MONTELUKAST SODIUM
     Dosage: UNK
  18. PREDNISONE [Concomitant]
     Active Substance: PREDNISONE
     Dosage: UNK
  19. TIZANIDINE HYDROCHLORIDE [Concomitant]
     Active Substance: TIZANIDINE HYDROCHLORIDE
     Dosage: UNK
  20. SULFASALAZINE [Concomitant]
     Active Substance: SULFASALAZINE
     Dosage: UNK
  21. OXYCODONE HYDROCHLORIDE [Concomitant]
     Active Substance: OXYCODONE HYDROCHLORIDE
     Dosage: UNK

REACTIONS (8)
  - Rheumatoid arthritis [Not Recovered/Not Resolved]
  - Condition aggravated [Not Recovered/Not Resolved]
  - Therapeutic product effect incomplete [Unknown]
  - Arthralgia [Unknown]
  - Joint swelling [Unknown]
  - Product dose omission issue [Unknown]
  - Pain [Unknown]
  - Asthenia [Unknown]
